FAERS Safety Report 15385563 (Version 1)
Quarter: 2018Q3

REPORT INFORMATION
  Report Type: Spontaneous
  Country: US (occurrence: US)
  Receive Date: 20180914
  Receipt Date: 20180914
  Transmission Date: 20181010
  Serious: No
  Sender: FDA-Public Use
  Company Number: US-LPDUSPRD-20171139

PATIENT
  Age: 26 Year
  Sex: Female
  Weight: 68.04 kg

DRUGS (1)
  1. INJECTAFER [Suspect]
     Active Substance: FERRIC CARBOXYMALTOSE
     Dosage: UNKNOWN
     Route: 042

REACTIONS (3)
  - Pruritus [Not Recovered/Not Resolved]
  - Abdominal pain [Recovered/Resolved]
  - Rash [Recovered/Resolved]
